FAERS Safety Report 21145821 (Version 1)
Quarter: 2022Q3

REPORT INFORMATION
  Report Type: Report from Study
  Country: CR (occurrence: CR)
  Receive Date: 20220729
  Receipt Date: 20220729
  Transmission Date: 20221027
  Serious: Yes (Life-Threatening)
  Sender: FDA-Public Use
  Company Number: CR-NOVARTISPH-PHHY2018CR039202

PATIENT
  Age: 27 Year
  Sex: Male

DRUGS (2)
  1. SECUKINUMAB [Suspect]
     Active Substance: SECUKINUMAB
     Indication: Ankylosing spondylitis
     Dosage: 150 MG
     Route: 065
  2. SECUKINUMAB [Suspect]
     Active Substance: SECUKINUMAB
     Dosage: 150 MG, QMO
     Route: 058
     Dates: start: 20180618, end: 20220620

REACTIONS (6)
  - Feeling abnormal [Unknown]
  - Pain [Not Recovered/Not Resolved]
  - Constipation [Unknown]
  - Hyperchlorhydria [Unknown]
  - Pruritus [Unknown]
  - Headache [Unknown]
